FAERS Safety Report 6412748-8 (Version None)
Quarter: 2009Q4

REPORT INFORMATION
  Report Type: 
  Country: None (occurrence: None)
  Receive Date: 20091023
  Receipt Date: 20091012
  Transmission Date: 20100525
  Serious: Yes (Other)
  Sender: FDA-Public Use
  Company Number: US-CELGENEUS-163-21880-09101047

PATIENT
  Sex: Female

DRUGS (2)
  1. REVLIMID [Suspect]
     Indication: MULTIPLE MYELOMA
     Route: 048
     Dates: start: 20070701
  2. REVLIMID [Suspect]
     Route: 048
     Dates: start: 20091001

REACTIONS (6)
  - AREFLEXIA [None]
  - BLINDNESS [None]
  - BLOOD COUNT ABNORMAL [None]
  - HEART RATE DECREASED [None]
  - NEUROPATHY PERIPHERAL [None]
  - PANCREATIC DISORDER [None]
